FAERS Safety Report 18606738 (Version 2)
Quarter: 2020Q4

REPORT INFORMATION
  Report Type: Report from Study
  Country: ES (occurrence: ES)
  Receive Date: 20201211
  Receipt Date: 20201217
  Transmission Date: 20210114
  Serious: Yes (Other)
  Sender: FDA-Public Use
  Company Number: ES-PFIZER INC-2020480832

PATIENT
  Age: 70 Year
  Sex: Male
  Weight: 83.3 kg

DRUGS (3)
  1. VEMURAFENIB. [Suspect]
     Active Substance: VEMURAFENIB
     Dosage: 720 MG/12H
     Dates: start: 20140606
  2. VEMURAFENIB. [Suspect]
     Active Substance: VEMURAFENIB
     Dosage: 960 MG/12 HOURS
     Route: 048
     Dates: start: 20140430, end: 20140605
  3. NO SUBJECT DRUG [Suspect]
     Active Substance: UNSPECIFIED INGREDIENT
     Dosage: NO DOSE GIVEN

REACTIONS (2)
  - Basal cell carcinoma [Recovered/Resolved]
  - Second primary malignancy [Recovered/Resolved]

NARRATIVE: CASE EVENT DATE: 20201008
